FAERS Safety Report 5865137-9 (Version None)
Quarter: 2008Q3

REPORT INFORMATION
  Report Type: 
  Country: None (occurrence: None)
  Receive Date: 20080829
  Receipt Date: 20080822
  Transmission Date: 20090109
  Serious: Yes (Death, Hospitalization)
  Sender: FDA-Public Use
  Company Number: A0745017A

PATIENT
  Age: 70 Year
  Sex: Female
  Weight: 100 kg

DRUGS (2)
  1. AVANDIA [Suspect]
     Dates: start: 20051222, end: 20060501
  2. HUMALOG [Concomitant]
     Dates: start: 19971231, end: 20070101

REACTIONS (3)
  - CEREBROVASCULAR ACCIDENT [None]
  - DEATH [None]
  - RENAL FAILURE [None]
